FAERS Safety Report 4272214-5 (Version None)
Quarter: 2004Q1

REPORT INFORMATION
  Report Type: 
  Country: None (occurrence: None)
  Receive Date: 20040115
  Receipt Date: 20031201
  Transmission Date: 20041129
  Serious: Yes (Life-Threatening, Other)
  Sender: FDA-Public Use
  Company Number: US-BRISTOL-MYERS SQUIBB COMPANY-12445391

PATIENT
  Age: 45 Year
  Sex: Male
  Weight: 114 kg

DRUGS (5)
  1. IXABEPILONE [Suspect]
     Indication: PROSTATE CANCER
     Dosage: ACTUAL DOSE GIVEN 69 MG. REMOVED FROM PROTOCOL 06-NOV-2003.
     Route: 042
     Dates: start: 20031103, end: 20031103
  2. ESTRAMUSTINE [Suspect]
     Indication: PROSTATE CANCER
     Dosage: ACTUAL DOSE GIVEN 4200 MG. REMOVED FROM PROTOCOL 06-NOV-2003.
     Route: 048
     Dates: start: 20031103, end: 20031106
  3. COUMADIN [Suspect]
  4. NEURONTIN [Concomitant]
  5. PROTONIX [Concomitant]

REACTIONS (9)
  - BALANCE DISORDER [None]
  - FALL [None]
  - HAEMATOCRIT DECREASED [None]
  - HEAD INJURY [None]
  - INTRACRANIAL ANEURYSM [None]
  - PERIPHERAL SENSORY NEUROPATHY [None]
  - PROTHROMBIN TIME PROLONGED [None]
  - SUBARACHNOID HAEMORRHAGE [None]
  - WHITE BLOOD CELL COUNT INCREASED [None]
